FAERS Safety Report 8976884 (Version 1)
Quarter: 2012Q4

REPORT INFORMATION
  Report Type: 
  Country: US (occurrence: US)
  Receive Date: 20121220
  Receipt Date: 20121220
  Transmission Date: 20130627
  Serious: No
  Sender: FDA-Public Use
  Company Number: US-GLAXOSMITHKLINE-A0977909A

PATIENT
  Sex: Female

DRUGS (4)
  1. PROPAFENONE HYDROCHLORIDE [Suspect]
     Indication: ATRIAL FIBRILLATION
     Route: 048
  2. PROPAFENONE HYDROCHLORIDE [Suspect]
     Indication: ATRIAL FIBRILLATION
     Route: 040
  3. RYTHMOL SR [Concomitant]
     Indication: ATRIAL FIBRILLATION
     Dosage: 325MG Unknown
     Route: 048
  4. PROPAFENONE HYDROCHLORIDE [Concomitant]
     Indication: ATRIAL FIBRILLATION
     Dosage: 325MG Unknown
     Route: 048

REACTIONS (5)
  - Dysgeusia [Unknown]
  - Therapeutic response increased [Unknown]
  - Dysgeusia [Unknown]
  - Sleep disorder [Unknown]
  - Nightmare [Unknown]
